FAERS Safety Report 9767669 (Version 1)
Quarter: 2013Q4

REPORT INFORMATION
  Report Type: Spontaneous
  Country: FR (occurrence: FR)
  Receive Date: 20131217
  Receipt Date: 20131217
  Transmission Date: 20140711
  Serious: No
  Sender: FDA-Public Use
  Company Number: FR-TEVA-446524ISR

PATIENT
  Age: 45 Year
  Sex: Female

DRUGS (3)
  1. COPAXONE [Suspect]
     Indication: MULTIPLE SCLEROSIS
     Dosage: 20 MILLIGRAM DAILY; MANUAL INJECTIONS
     Dates: start: 20130516
  2. LEVOTHYROX 62.5 ?G [Concomitant]
  3. EUPHYTOSE [Concomitant]
     Dosage: .5  DAILY;

REACTIONS (9)
  - Pollakiuria [Recovered/Resolved]
  - Oliguria [Recovered/Resolved]
  - Injection site bruising [Unknown]
  - Injection site discolouration [Unknown]
  - Nausea [Recovered/Resolved]
  - Injection site haematoma [Unknown]
  - Back pain [Unknown]
  - Fatigue [Recovered/Resolved]
  - Injection site swelling [Unknown]
